FAERS Safety Report 5482832-4 (Version None)
Quarter: 2007Q4

REPORT INFORMATION
  Report Type: 
  Country: None (occurrence: None)
  Receive Date: 20071011
  Receipt Date: 20070928
  Transmission Date: 20080405
  Serious: No
  Sender: FDA-Public Use
  Company Number: FR-PFIZER INC-2007074072

PATIENT
  Sex: Female
  Weight: 49 kg

DRUGS (3)
  1. TAHOR [Suspect]
  2. SIMVASTATIN [Suspect]
  3. RIVOTRIL [Concomitant]
     Route: 048

REACTIONS (3)
  - HEADACHE [None]
  - MYALGIA [None]
  - NO ADVERSE REACTION [None]
